FAERS Safety Report 13264350 (Version 2)
Quarter: 2017Q1

REPORT INFORMATION
  Report Type: Spontaneous
  Country: AT (occurrence: AT)
  Receive Date: 20170223
  Receipt Date: 20170227
  Transmission Date: 20170428
  Serious: Yes (Death, Other)
  Sender: FDA-Public Use
  Company Number: AT-PFIZER INC-2017075814

PATIENT
  Age: 75 Year
  Sex: Female

DRUGS (1)
  1. SUTENT [Suspect]
     Active Substance: SUNITINIB MALATE
     Indication: METASTATIC RENAL CELL CARCINOMA
     Dosage: 50 MG, CYCLIC, (2/1)
     Dates: start: 20160226

REACTIONS (5)
  - Second primary malignancy [Unknown]
  - Fall [Recovered/Resolved]
  - Cardiac arrest [Fatal]
  - Vertigo [Recovered/Resolved]
  - Thyroid cancer [Unknown]

NARRATIVE: CASE EVENT DATE: 201608
